FAERS Safety Report 15490199 (Version 1)
Quarter: 2018Q4

REPORT INFORMATION
  Report Type: Spontaneous
  Country: SA (occurrence: SA)
  Receive Date: 20181011
  Receipt Date: 20181011
  Transmission Date: 20190205
  Serious: Yes (Life-Threatening, Other)
  Sender: FDA-Public Use
  Company Number: SA-SAKK-2018SA274218AA

PATIENT
  Age: 12 Month
  Sex: Male
  Weight: 10 kg

DRUGS (1)
  1. MYOZYME [Suspect]
     Active Substance: ALGLUCOSIDASE ALFA
     Indication: GLYCOGEN STORAGE DISEASE TYPE II
     Dosage: 20 MG, QOW
     Route: 041

REACTIONS (3)
  - Cardiomyopathy [Unknown]
  - Disease progression [Unknown]
  - Respiratory distress [Unknown]
